FAERS Safety Report 9152531 (Version 2)
Quarter: 2013Q4

REPORT INFORMATION
  Report Type: Spontaneous
  Country: GB (occurrence: GB)
  Receive Date: 20130308
  Receipt Date: 20131010
  Transmission Date: 20140711
  Serious: Yes (Other)
  Sender: FDA-Public Use
  Company Number: GB-VERTEX PHARMACEUTICALS INC.-2013-000638

PATIENT
  Age: 63 Year
  Sex: Male
  Weight: 103 kg

DRUGS (6)
  1. INCIVO [Suspect]
     Indication: HEPATITIS C
     Dosage: 750 MG, TID
     Route: 048
     Dates: start: 20121107, end: 20130129
  2. RIBAVIRIN [Suspect]
     Indication: HEPATITIS C
     Dosage: 400 MG, BID
     Route: 048
     Dates: start: 20121107
  3. RIBAVIRIN [Suspect]
     Dosage: 200 MG AND 400 MG PER DAY (DAILY TOTAL DOSE 600)
     Route: 048
     Dates: start: 2012
  4. RIBAVIRIN [Suspect]
     Dosage: 400 BD (TWICE A DAY), CONTINUED ANOTHER 4 WEEKS AFTER THE 12 WEEKS OF TELAPREVIR THERAPY
     Route: 048
     Dates: start: 20130225
  5. PEGYLATED INTERFERON ALFA-2B [Concomitant]
     Indication: HEPATITIS C
     Dosage: DOSAGE FORM: UNSPECIFIED
     Route: 058
     Dates: start: 20121107
  6. LISINOPRIL [Concomitant]
     Indication: HYPERTENSION
     Dosage: DOSAGE FORM: UNSPECIFIED
     Route: 065

REACTIONS (2)
  - Blood creatinine increased [Recovered/Resolved]
  - Anaemia [Recovered/Resolved]
